FAERS Safety Report 19770735 (Version 3)
Quarter: 2021Q4

REPORT INFORMATION
  Report Type: Spontaneous
  Country: US (occurrence: US)
  Receive Date: 20210831
  Receipt Date: 20211029
  Transmission Date: 20220303
  Serious: No
  Sender: FDA-Public Use
  Company Number: NVSC2021US192857

PATIENT
  Age: 38 Year
  Sex: Female

DRUGS (1)
  1. ADAKVEO [Suspect]
     Active Substance: CRIZANLIZUMAB-TMCA
     Indication: Sickle cell anaemia with crisis
     Dosage: 5 MG/KG QMO (INTRAVENOUS- INTO BLOODSTRAEM VIA VEIN)
     Route: 042

REACTIONS (2)
  - Infusion related reaction [Unknown]
  - Pain [Unknown]
